APPROVED DRUG PRODUCT: DIGOXIN
Active Ingredient: DIGOXIN
Strength: 0.0625MG
Dosage Form/Route: TABLET;ORAL
Application: A214982 | Product #001 | TE Code: AB
Applicant: AUROBINDO PHARMA LTD
Approved: Feb 8, 2022 | RLD: No | RS: No | Type: RX